FAERS Safety Report 6068949-4 (Version None)
Quarter: 2009Q1

REPORT INFORMATION
  Report Type: 
  Country: None (occurrence: None)
  Receive Date: 20090203
  Receipt Date: 20090122
  Transmission Date: 20090719
  Serious: Yes (Other)
  Sender: FDA-Public Use
  Company Number: 2009AP000305

PATIENT
  Sex: Male

DRUGS (4)
  1. ALPRAZOLAM [Suspect]
     Indication: AGITATION
     Dosage: 1 MG; TAB; PO; PRN 4 MG; TAB; PO; 1X
     Route: 048
     Dates: start: 20080119
  2. METFORMIN HCL [Concomitant]
  3. AMLODIPINE [Concomitant]
  4. DIAZEPAM [Concomitant]

REACTIONS (9)
  - AGGRESSION [None]
  - ALCOHOL INTERACTION [None]
  - CONVULSION [None]
  - DIZZINESS [None]
  - FEELING DRUNK [None]
  - GAIT DISTURBANCE [None]
  - INTENTIONAL DRUG MISUSE [None]
  - NAUSEA [None]
  - SPEECH DISORDER [None]
